FAERS Safety Report 8966865 (Version 1)
Quarter: 2012Q4

REPORT INFORMATION
  Report Type: 
  Country: US (occurrence: US)
  Receive Date: 20121214
  Receipt Date: 20121214
  Transmission Date: 20130627
  Serious: Yes (Hospitalization, Other)
  Sender: FDA-Public Use
  Company Number: US-ABBOTT-12P-163-1022145-00

PATIENT
  Age: 46 None
  Sex: Male

DRUGS (2)
  1. ANDROGEL [Suspect]
     Indication: BLOOD TESTOSTERONE DECREASED
     Dosage: 4 pumps
     Route: 061
     Dates: start: 201206, end: 20121124
  2. ANDROGEL [Suspect]
     Dosage: One packet
     Route: 061
     Dates: start: 2011, end: 201206

REACTIONS (10)
  - Pulmonary embolism [Unknown]
  - Thrombosis [Unknown]
  - Fall [Recovered/Resolved]
  - Contusion [Recovered/Resolved]
  - Pain in extremity [Recovered/Resolved]
  - Musculoskeletal chest pain [Recovered/Resolved]
  - Pyrexia [Recovered/Resolved]
  - Chills [Recovered/Resolved]
  - Musculoskeletal chest pain [Recovered/Resolved]
  - Musculoskeletal chest pain [Not Recovered/Not Resolved]
